FAERS Safety Report 8778563 (Version 1)
Quarter: 2012Q4

REPORT INFORMATION
  Report Type: 
  Country: US (occurrence: US)
  Receive Date: 20120912
  Receipt Date: 20120912
  Transmission Date: 20130627
  Serious: Yes (Other)
  Sender: FDA-Public Use
  Company Number: CHPA2012US019332

PATIENT
  Sex: Female

DRUGS (2)
  1. MYOFLEX [Suspect]
     Dosage: Unk, Unk
     Route: 061
  2. WARFARIN [Suspect]
     Dosage: Unk, Unk
     Dates: start: 20110509

REACTIONS (1)
  - Epistaxis [Recovered/Resolved]
